FAERS Safety Report 20125994 (Version 1)
Quarter: 2021Q4

REPORT INFORMATION
  Report Type: Spontaneous
  Country: US (occurrence: None)
  Receive Date: 20211127
  Receipt Date: 20211127
  Transmission Date: 20220303
  Serious: Yes (Hospitalization)
  Sender: FDA-Public Use
  Company Number: None

PATIENT
  Sex: Female

DRUGS (5)
  1. BRAFTOVI [Suspect]
     Active Substance: ENCORAFENIB
     Indication: Malignant melanoma
     Dosage: FREQUENCY : DAILY;?
     Route: 048
     Dates: start: 20210119
  2. BUPROPION [Concomitant]
     Active Substance: BUPROPION
  3. MEKTOVI [Concomitant]
     Active Substance: BINIMETINIB
  4. MICONAZOLE [Concomitant]
     Active Substance: MICONAZOLE
  5. MYRBETRIQ [Concomitant]
     Active Substance: MIRABEGRON

REACTIONS (2)
  - Surgery [None]
  - Therapy interrupted [None]
